FAERS Safety Report 9784600 (Version 1)
Quarter: 2013Q4

REPORT INFORMATION
  Report Type: Spontaneous
  Country: PT (occurrence: PT)
  Receive Date: 20131226
  Receipt Date: 20131226
  Transmission Date: 20140711
  Serious: Yes (Other)
  Sender: FDA-Public Use
  Company Number: PT-ACTAVIS-2013-23301

PATIENT
  Age: 75 Year
  Sex: Female
  Weight: 83 kg

DRUGS (10)
  1. PACLITAXEL ACTAVIS [Suspect]
     Indication: OVARIAN CANCER
     Dosage: 310 MG, 175 MG/M2, (CONCENTRATION OF SOLUTION:0.56 MG/ML; PERFUSION RATE: 183.89 ML/H) EVERY 21 DAYS
     Route: 042
     Dates: start: 20131107
  2. SINVASTATINA [Concomitant]
     Indication: DYSLIPIDAEMIA
     Route: 048
  3. MODURETIC [Concomitant]
     Indication: HYPERTENSION
     Dosage: 1 DF (TABLET), UNK
     Route: 048
  4. CORDARONE [Concomitant]
     Indication: ARRHYTHMIA
     Dosage: 200 MG, UNK
     Route: 048
  5. SERETAIDE DISKUS [Concomitant]
     Indication: HYPERTENSION
     Dosage: 1 DF, PRN
     Route: 055
  6. FLUIMUCIL [Concomitant]
     Indication: HYPERTENSION
     Dosage: 600 MG, PRN
     Route: 048
  7. TAVIST                             /00137202/ [Concomitant]
     Indication: PREMEDICATION
     Dosage: 2 MG, EVERY 21 DAYS
     Route: 042
     Dates: start: 20131107
  8. BLOCULCER [Concomitant]
     Indication: PREMEDICATION
     Dosage: 50 MG, EVERY 21 DAYS
     Route: 048
     Dates: start: 20131107
  9. GRANISETRON ACTAVIS [Concomitant]
     Indication: PREMEDICATION
     Dosage: 2 MG, EVERY 21 DAYS
     Route: 048
     Dates: start: 20131107
  10. CARBOPLATINA [Concomitant]
     Indication: OVARIAN CANCER
     Dosage: 610 MG, EVERY 21 DAYS
     Route: 042
     Dates: start: 20131107, end: 20131107

REACTIONS (5)
  - Dyspnoea [Recovered/Resolved]
  - Chest pain [Recovered/Resolved]
  - Blood pressure increased [Recovered/Resolved]
  - Back pain [Recovered/Resolved]
  - Erythema [Recovered/Resolved]
